FAERS Safety Report 14572312 (Version 1)
Quarter: 2018Q1

REPORT INFORMATION
  Report Type: Spontaneous
  Country: ES (occurrence: ES)
  Receive Date: 20180226
  Receipt Date: 20180226
  Transmission Date: 20180509
  Serious: Yes (Other)
  Sender: FDA-Public Use
  Company Number: ES-BAYER-2018-033029

PATIENT
  Sex: Female

DRUGS (2)
  1. MIRENA [Suspect]
     Active Substance: LEVONORGESTREL
     Indication: CONTRACEPTION
     Dosage: 20 MCG/24HR, CONT
     Route: 015
     Dates: start: 201110, end: 20150326
  2. MIRENA [Suspect]
     Active Substance: LEVONORGESTREL
     Indication: CONTRACEPTION

REACTIONS (8)
  - Pregnancy with contraceptive device [Recovered/Resolved]
  - Cervix haemorrhage uterine [None]
  - Device dislocation [Recovered/Resolved]
  - Endometrial hyperplasia [None]
  - Genital haemorrhage [None]
  - Drug ineffective [None]
  - Retained products of conception [None]
  - Pelvic pain [Unknown]

NARRATIVE: CASE EVENT DATE: 20140211
